FAERS Safety Report 10255913 (Version 2)
Quarter: 2014Q3

REPORT INFORMATION
  Report Type: Spontaneous
  Country: US (occurrence: US)
  Receive Date: 20140624
  Receipt Date: 20140902
  Transmission Date: 20150326
  Serious: Yes (Hospitalization)
  Sender: FDA-Public Use
  Company Number: US-GLAXOSMITHKLINE-A1077359A

PATIENT
  Age: 76 Year
  Sex: Female

DRUGS (11)
  1. WELLBUTRIN [Concomitant]
     Active Substance: BUPROPION HYDROCHLORIDE
  2. COZAAR [Concomitant]
     Active Substance: LOSARTAN POTASSIUM
  3. SYNTHROID [Concomitant]
     Active Substance: LEVOTHYROXINE SODIUM
  4. ERGOCALCIFEROL. [Concomitant]
     Active Substance: ERGOCALCIFEROL
  5. ADVAIR HFA [Suspect]
     Active Substance: FLUTICASONE PROPIONATE\SALMETEROL XINAFOATE
     Indication: CHRONIC OBSTRUCTIVE PULMONARY DISEASE
     Dosage: 1PUFF PER DAY
     Route: 055
  6. ZYLOPRIM [Concomitant]
     Active Substance: ALLOPURINOL
  7. MICROZIDE [Concomitant]
     Active Substance: HYDROCHLOROTHIAZIDE
  8. ASPIRIN. [Concomitant]
     Active Substance: ASPIRIN
  9. TOPROL XL [Concomitant]
     Active Substance: METOPROLOL SUCCINATE
  10. LYRICA [Concomitant]
     Active Substance: PREGABALIN
  11. ZOCOR [Concomitant]
     Active Substance: SIMVASTATIN

REACTIONS (9)
  - Intestinal obstruction [Unknown]
  - Diverticulitis [Unknown]
  - Peripheral swelling [Unknown]
  - Cholecystectomy [Unknown]
  - Knee arthroplasty [Unknown]
  - Adhesion [Unknown]
  - Arterial stent insertion [Unknown]
  - Arterial injury [Unknown]
  - Varicose vein [Unknown]

NARRATIVE: CASE EVENT DATE: 2012
